FAERS Safety Report 25732876 (Version 2)
Quarter: 2025Q3

REPORT INFORMATION
  Report Type: Spontaneous
  Country: US (occurrence: US)
  Receive Date: 20250828
  Receipt Date: 20250918
  Transmission Date: 20251020
  Serious: No
  Sender: CSL BEHRING
  Company Number: US-BEH-2025216510

PATIENT
  Sex: Female

DRUGS (3)
  1. HIZENTRA [Suspect]
     Active Substance: HUMAN IMMUNOGLOBULIN G
     Indication: Immunodeficiency common variable
     Dosage: 4 G, QW
     Route: 058
     Dates: start: 202412
  2. HIZENTRA [Suspect]
     Active Substance: HUMAN IMMUNOGLOBULIN G
     Dosage: 10 G, QW
     Route: 058
     Dates: start: 202412
  3. KEFLEX [Suspect]
     Active Substance: CEPHALEXIN
     Route: 065

REACTIONS (11)
  - Adverse drug reaction [Unknown]
  - Cellulitis [Unknown]
  - Swelling [Unknown]
  - Erythema [Unknown]
  - Blister [Unknown]
  - Red blood cell morphology abnormal [Unknown]
  - Iron deficiency [Unknown]
  - Drug hypersensitivity [Unknown]
  - Peripheral swelling [Unknown]
  - Headache [Unknown]
  - Pain [Unknown]
